FAERS Safety Report 14481906 (Version 1)
Quarter: 2018Q1

REPORT INFORMATION
  Report Type: Report from Study
  Country: BR (occurrence: BR)
  Receive Date: 20180202
  Receipt Date: 20180202
  Transmission Date: 20180509
  Serious: Yes (Other)
  Sender: FDA-Public Use
  Company Number: BR-PFIZER INC-2018046012

PATIENT
  Age: 10 Year
  Sex: Male

DRUGS (7)
  1. METHYLPREDNISOLONE ACETATE. [Suspect]
     Active Substance: METHYLPREDNISOLONE ACETATE
     Indication: BLAU SYNDROME
     Dosage: UNK
  2. MYCOPHENOLATE [Suspect]
     Active Substance: MYCOPHENOLIC ACID
  3. TRIAMCINOLONE ACETONIDE. [Suspect]
     Active Substance: TRIAMCINOLONE ACETONIDE
     Indication: BLAU SYNDROME
     Dosage: UNK, 1X/DAY
     Route: 047
  4. PREDNISONE. [Suspect]
     Active Substance: PREDNISONE
     Indication: BLAU SYNDROME
     Dosage: UNK
     Route: 048
  5. REMICADE [Suspect]
     Active Substance: INFLIXIMAB
     Indication: BLAU SYNDROME
     Dosage: UNK
  6. METHOTREXATE SODIUM. [Suspect]
     Active Substance: METHOTREXATE SODIUM
     Indication: BLAU SYNDROME
     Dosage: UNK
  7. OZURDEX [Suspect]
     Active Substance: DEXAMETHASONE
     Indication: BLAU SYNDROME
     Dosage: UNK (IMPLANT) (LEFT EYE)
     Route: 048

REACTIONS (4)
  - Iris adhesions [Unknown]
  - Macular oedema [Unknown]
  - Ocular hypertension [Recovering/Resolving]
  - Drug ineffective [Unknown]
